FAERS Safety Report 6554617-9 (Version None)
Quarter: 2010Q1

REPORT INFORMATION
  Report Type: 
  Country: None (occurrence: None)
  Receive Date: 20100127
  Receipt Date: 20100125
  Transmission Date: 20100710
  Serious: Yes (Other)
  Sender: FDA-Public Use
  Company Number: US-SANOFI-AVENTIS-2010SA004728

PATIENT
  Sex: Male

DRUGS (2)
  1. PLAVIX [Suspect]
     Route: 048
     Dates: start: 20040101
  2. COUMADIN [Suspect]
     Dates: start: 20010101

REACTIONS (3)
  - INTERNATIONAL NORMALISED RATIO INCREASED [None]
  - PERIPHERAL VASCULAR DISORDER [None]
  - SKIN ULCER [None]
